FAERS Safety Report 11691187 (Version 1)
Quarter: 2015Q4

REPORT INFORMATION
  Report Type: Spontaneous
  Country: US (occurrence: US)
  Receive Date: 20151102
  Receipt Date: 20151102
  Transmission Date: 20160304
  Serious: No
  Sender: FDA-Public Use
  Company Number: US-PERRIGO-15US007542

PATIENT
  Age: 52 Year
  Sex: Female
  Weight: 61.68 kg

DRUGS (1)
  1. NICOTINE MINI MINT 4 MG 957 [Suspect]
     Active Substance: NICOTINE
     Indication: PRODUCT USED FOR UNKNOWN INDICATION
     Dosage: 4 MG, SINGLE
     Route: 002
     Dates: start: 201507, end: 201507

REACTIONS (3)
  - Nausea [Recovered/Resolved]
  - Throat tightness [Recovered/Resolved]
  - Dyspnoea [Recovered/Resolved]

NARRATIVE: CASE EVENT DATE: 201507
